FAERS Safety Report 4874549-1 (Version None)
Quarter: 2006Q1

REPORT INFORMATION
  Report Type: 
  Country: None (occurrence: None)
  Receive Date: 20060106
  Receipt Date: 20051228
  Transmission Date: 20060701
  Serious: Yes (Life-Threatening, Hospitalization)
  Sender: FDA-Public Use
  Company Number: FR-AVENTIS-200514374FR

PATIENT
  Age: 59 Year
  Sex: Female

DRUGS (5)
  1. LANTUS [Suspect]
     Indication: DIABETES MELLITUS
     Route: 058
  2. GLUCOPHAGE [Suspect]
     Indication: DIABETES MELLITUS
     Route: 048
  3. TIAPRIDAL [Suspect]
     Route: 048
  4. DEPAKOTE [Suspect]
     Indication: PSYCHOTIC DISORDER
  5. PARACETAMOL [Concomitant]

REACTIONS (1)
  - HYPONATRAEMIA [None]
